FAERS Safety Report 24977206 (Version 1)
Quarter: 2025Q1

REPORT INFORMATION
  Report Type: Spontaneous
  Country: US (occurrence: US)
  Receive Date: 20250217
  Receipt Date: 20250217
  Transmission Date: 20250408
  Serious: No
  Sender: TOLMAR
  Company Number: US-TOLMAR, INC.-25US055999

PATIENT
  Age: 59 Year
  Sex: Male

DRUGS (1)
  1. ELIGARD [Suspect]
     Active Substance: LEUPROLIDE ACETATE
     Indication: Prostatic specific antigen increased
     Route: 030
     Dates: start: 20250120, end: 20250120

REACTIONS (3)
  - Product dispensing error [Unknown]
  - Incorrect route of product administration [Unknown]
  - Wrong product administered [Unknown]

NARRATIVE: CASE EVENT DATE: 20250120
